FAERS Safety Report 10583345 (Version 1)
Quarter: 2014Q4

REPORT INFORMATION
  Report Type: Spontaneous
  Country: US (occurrence: None)
  Receive Date: 20141112
  Receipt Date: 20141112
  Transmission Date: 20150529
  Serious: Yes (Death)
  Sender: FDA-Public Use
  Company Number: MIN-00998

PATIENT
  Age: 54 Year
  Sex: Male

DRUGS (1)
  1. MINOCYCLINE [Suspect]
     Active Substance: MINOCYCLINE\MINOCYCLINE HYDROCHLORIDE
     Indication: OSTEOMYELITIS CHRONIC
     Dosage: ONE 100MG CAPSULE TWICE DAILY, ORAL
     Route: 048

REACTIONS (2)
  - Thyroid disorder [None]
  - Oesophageal varices haemorrhage [None]

NARRATIVE: CASE EVENT DATE: 20141027
